FAERS Safety Report 14752897 (Version 1)
Quarter: 2018Q2

REPORT INFORMATION
  Report Type: Spontaneous
  Country: US (occurrence: US)
  Receive Date: 20180412
  Receipt Date: 20180412
  Transmission Date: 20180711
  Serious: No
  Sender: FDA-Public Use
  Company Number: US-BAYER-2018-064522

PATIENT
  Age: 63 Year
  Sex: Female
  Weight: 82 kg

DRUGS (1)
  1. ZEGERID OTC CAPSULES [Suspect]
     Active Substance: OMEPRAZOLE\SODIUM BICARBONATE
     Indication: GASTROINTESTINAL DISORDER
     Dosage: 1 DF, EVERY MORNING BEFORE MEAL
     Route: 048

REACTIONS (3)
  - Product quality issue [None]
  - Product use issue [Unknown]
  - Product prescribing issue [Unknown]
